FAERS Safety Report 17672890 (Version 3)
Quarter: 2020Q2

REPORT INFORMATION
  Report Type: Spontaneous
  Country: JP (occurrence: JP)
  Receive Date: 20200415
  Receipt Date: 20200514
  Transmission Date: 20200713
  Serious: Yes (Hospitalization, Other)
  Sender: FDA-Public Use
  Company Number: JP-PFIZER INC-2020065771

PATIENT
  Age: 84 Year
  Sex: Female

DRUGS (6)
  1. LYRICA [Suspect]
     Active Substance: PREGABALIN
     Indication: BACK PAIN
     Dosage: 25 MG, 1X/DAY
     Route: 048
     Dates: end: 20200205
  2. AMOBAN [Suspect]
     Active Substance: ZOPICLONE
     Indication: BACK PAIN
     Dosage: UNK
     Route: 048
  3. EVENITY [Suspect]
     Active Substance: ROMOSOZUMAB-AQQG
     Dosage: 210 MG
     Route: 058
     Dates: start: 20200410
  4. ETIZOLAM [Suspect]
     Active Substance: ETIZOLAM
     Indication: BACK PAIN
     Dosage: UNK
     Route: 048
  5. EVENITY [Suspect]
     Active Substance: ROMOSOZUMAB-AQQG
     Indication: OSTEOPOROSIS
     Dosage: 210 MG, 1X/DAY
     Route: 058
     Dates: start: 20200125, end: 20200205
  6. CELECOX [Suspect]
     Active Substance: CELECOXIB
     Indication: BACK PAIN
     Dosage: 200 MG, 1X/DAY
     Route: 048

REACTIONS (1)
  - Spinal compression fracture [Unknown]

NARRATIVE: CASE EVENT DATE: 20200205
